FAERS Safety Report 13522913 (Version 2)
Quarter: 2017Q2

REPORT INFORMATION
  Report Type: Spontaneous
  Country: ES (occurrence: ES)
  Receive Date: 20170508
  Receipt Date: 20170509
  Transmission Date: 20170830
  Serious: Yes (Hospitalization, Other)
  Sender: FDA-Public Use
  Company Number: ES-SA-2017SA076429

PATIENT
  Sex: Male

DRUGS (1)
  1. LEMTRADA [Suspect]
     Active Substance: ALEMTUZUMAB
     Route: 042
     Dates: start: 2016, end: 2016

REACTIONS (3)
  - Therapy non-responder [Unknown]
  - Nuclear magnetic resonance imaging abnormal [Unknown]
  - Encephalomyelitis [Not Recovered/Not Resolved]
